FAERS Safety Report 10278100 (Version 2)
Quarter: 2014Q3

REPORT INFORMATION
  Report Type: Report from Study
  Country: US (occurrence: US)
  Receive Date: 20140704
  Receipt Date: 20140721
  Transmission Date: 20150326
  Serious: Yes (Hospitalization)
  Sender: FDA-Public Use
  Company Number: US-ACTELION-A-NJ2014-101193

PATIENT
  Age: 61 Year
  Sex: Female

DRUGS (5)
  1. SILDENAFIL [Concomitant]
     Active Substance: SILDENAFIL
     Dosage: UNK
     Dates: start: 2009, end: 201406
  2. VITAMIN B12 [Concomitant]
     Active Substance: CYANOCOBALAMIN
     Dosage: UNK
     Dates: start: 201406
  3. TRACLEER [Suspect]
     Active Substance: BOSENTAN\BOSENTAN MONOHYDRATE
     Indication: PULMONARY ARTERIAL HYPERTENSION
     Dosage: UNK
     Route: 048
  4. COUMADIN [Concomitant]
     Active Substance: WARFARIN SODIUM
     Dosage: 4 MG, QD
     Dates: start: 2009
  5. ADCIRCA [Concomitant]
     Active Substance: TADALAFIL
     Dosage: 40 MG, QD
     Dates: start: 201406

REACTIONS (6)
  - Depression [Recovering/Resolving]
  - Condition aggravated [Recovered/Resolved]
  - Insomnia [Recovering/Resolving]
  - Fluid retention [Recovered/Resolved]
  - Asthenia [Not Recovered/Not Resolved]
  - Thyroid disorder [Recovered/Resolved]

NARRATIVE: CASE EVENT DATE: 2009
